FAERS Safety Report 19221370 (Version 1)
Quarter: 2021Q2

REPORT INFORMATION
  Report Type: Other
  Country: CA (occurrence: CA)
  Receive Date: 20210506
  Receipt Date: 20210506
  Transmission Date: 20210717
  Serious: Yes (Other)
  Sender: FDA-Public Use
  Company Number: CA-APOTEX-2021AP010933

PATIENT
  Age: 34 Year
  Sex: Male
  Weight: 74 kg

DRUGS (3)
  1. DOXYCYCLINE. [Suspect]
     Active Substance: DOXYCYCLINE
     Indication: STAPHYLOCOCCAL INFECTION
     Dosage: UNK
     Route: 048
  2. REMICADE [Suspect]
     Active Substance: INFLIXIMAB
     Indication: CROHN^S DISEASE
     Dosage: 400 MILLIGRAM (1 EVERY 6 WEEKS)
     Route: 042
  3. MINOCYCLINE [Suspect]
     Active Substance: MINOCYCLINE HYDROCHLORIDE
     Indication: STAPHYLOCOCCAL INFECTION
     Dosage: 100 MILLIGRAM, QD
     Route: 048

REACTIONS (5)
  - Abdominal distension [Unknown]
  - Gastrointestinal inflammation [Unknown]
  - Flatulence [Unknown]
  - Staphylococcal skin infection [Unknown]
  - Constipation [Unknown]
